FAERS Safety Report 17298903 (Version 1)
Quarter: 2020Q1

REPORT INFORMATION
  Report Type: Spontaneous
  Country: NL (occurrence: NL)
  Receive Date: 20200122
  Receipt Date: 20200122
  Transmission Date: 20200409
  Serious: Yes (Hospitalization, Other)
  Sender: FDA-Public Use
  Company Number: NL-BAYER-2020-011266

PATIENT
  Age: 61 Year
  Sex: Female

DRUGS (2)
  1. ULTRAVIST [Suspect]
     Active Substance: IOPROMIDE
     Indication: ABDOMINAL PAIN UPPER
     Dosage: 105 ML, ONCE
     Route: 042
     Dates: start: 20200117
  2. ULTRAVIST [Suspect]
     Active Substance: IOPROMIDE
     Indication: WEIGHT DECREASED

REACTIONS (5)
  - Cold sweat [Recovered/Resolved]
  - Erythema [Recovered/Resolved]
  - Unresponsive to stimuli [Recovered/Resolved]
  - Headache [Recovered/Resolved]
  - Hyperhidrosis [Recovered/Resolved]

NARRATIVE: CASE EVENT DATE: 20200117
